FAERS Safety Report 7910061-0 (Version None)
Quarter: 2011Q4

REPORT INFORMATION
  Report Type: 
  Country: None (occurrence: None)
  Receive Date: 20111111
  Receipt Date: 20111026
  Transmission Date: 20120403
  Serious: Yes (Hospitalization)
  Sender: FDA-Public Use
  Company Number: DE-ROCHE-578697

PATIENT
  Sex: Female

DRUGS (8)
  1. PACLITAXEL [Suspect]
     Indication: BREAST CANCER
     Dosage: FOR 12 WEEKS
     Route: 042
     Dates: start: 20080618, end: 20080722
  2. MARCUMAR [Concomitant]
  3. HERCEPTIN [Suspect]
     Dosage: MAINTENANCE DOSE
     Route: 042
     Dates: start: 20080624, end: 20080722
  4. ONDANSETRON HYDROCHLORIDE [Concomitant]
  5. DIMETHINDENE MALEATE [Concomitant]
  6. HERCEPTIN [Suspect]
     Indication: BREAST CANCER
     Dosage: LOADING DOSE
     Route: 042
  7. FORTECORTIN [Concomitant]
  8. RANITIDINE HYDROCHLORIDE [Concomitant]

REACTIONS (2)
  - CARDIAC FAILURE CONGESTIVE [None]
  - PULMONARY EMBOLISM [None]
